FAERS Safety Report 4659687-0 (Version None)
Quarter: 2005Q2

REPORT INFORMATION
  Report Type: 
  Country: None (occurrence: None)
  Receive Date: 20050420
  Receipt Date: 20050308
  Transmission Date: 20051028
  Serious: No
  Sender: FDA-Public Use
  Company Number: PHEH2005US02922

PATIENT
  Age: 82 Year
  Sex: Male

DRUGS (6)
  1. ENABLEX [Suspect]
     Indication: POLLAKIURIA
     Dosage: 7.5 MG QD ORAL
     Route: 048
     Dates: start: 20050303
  2. PLAVIX [Concomitant]
  3. LEXAPRO [Concomitant]
  4. ZOCOR [Concomitant]
  5. NORTRIPTYLINE HYDROCHLORODIE (NORTRIPTYLINE HYDROCHLORIDE) [Concomitant]
  6. QUININE SULFATE [Concomitant]

REACTIONS (1)
  - MUSCLE SPASMS [None]
